FAERS Safety Report 4465745-6 (Version None)
Quarter: 2004Q3

REPORT INFORMATION
  Report Type: 
  Country: None (occurrence: None)
  Receive Date: 20040929
  Receipt Date: 20040929
  Transmission Date: 20050211
  Serious: Yes (Hospitalization)
  Sender: FDA-Public Use
  Company Number: None

PATIENT
  Sex: Male
  Weight: 44 kg

DRUGS (2)
  1. TRILEPTAL [Suspect]
     Indication: AFFECTIVE DISORDER
     Dosage: 300 MG BID ORAL
     Route: 048
     Dates: start: 20040909, end: 20040918
  2. TRILEPTAL [Suspect]
     Indication: CONVULSION
     Dosage: 300 MG BID ORAL
     Route: 048
     Dates: start: 20040909, end: 20040918

REACTIONS (6)
  - FLUID INTAKE REDUCED [None]
  - LISTLESS [None]
  - ORAL MUCOSAL ERUPTION [None]
  - PYREXIA [None]
  - RASH GENERALISED [None]
  - RASH PRURITIC [None]
